FAERS Safety Report 14430381 (Version 1)
Quarter: 2018Q1

REPORT INFORMATION
  Report Type: Spontaneous
  Country: US (occurrence: US)
  Receive Date: 20180124
  Receipt Date: 20180124
  Transmission Date: 20180509
  Serious: No
  Sender: FDA-Public Use
  Company Number: US-B.I. PHARMACEUTICALS,INC./RIDGEFIELD-2018-BI-002947

PATIENT
  Age: 92 Year
  Sex: Male

DRUGS (1)
  1. SPIRIVA RESPIMAT [Suspect]
     Active Substance: TIOTROPIUM BROMIDE
     Indication: ASTHMA
     Dosage: 2 PUFFS ONCE DAILY; STRENGTH: 1.25 MCG; FORMULATION: INHALATION SPRAY(S)
     Route: 055
     Dates: start: 2016

REACTIONS (3)
  - Dysuria [Not Recovered/Not Resolved]
  - Cough [Unknown]
  - Hypoacusis [Unknown]

NARRATIVE: CASE EVENT DATE: 201712
